FAERS Safety Report 10949139 (Version 1)
Quarter: 2015Q1

REPORT INFORMATION
  Report Type: Spontaneous
  Country: None (occurrence: None)
  Receive Date: 20150323
  Receipt Date: 20150323
  Transmission Date: 20150721
  Serious: Yes (Other)
  Sender: FDA-Public Use
  Company Number: None

PATIENT
  Age: 48 Year
  Sex: Female
  Weight: 81.65 kg

DRUGS (1)
  1. CONTRAVE [Suspect]
     Active Substance: BUPROPION HYDROCHLORIDE\NALTREXONE HYDROCHLORIDE
     Dosage: 2PILSX 2 TIMES A DAY
     Route: 048
     Dates: start: 20150223, end: 20150321

REACTIONS (7)
  - Insomnia [None]
  - Dysgeusia [None]
  - Nausea [None]
  - Constipation [None]
  - Fatigue [None]
  - Ocular hyperaemia [None]
  - Eye pain [None]

NARRATIVE: CASE EVENT DATE: 20150321
